FAERS Safety Report 7691817-9 (Version None)
Quarter: 2011Q3

REPORT INFORMATION
  Report Type: 
  Country: None (occurrence: None)
  Receive Date: 20110818
  Receipt Date: 20110816
  Transmission Date: 20111222
  Serious: Yes (Life-Threatening, Hospitalization)
  Sender: FDA-Public Use
  Company Number: JP-B.I. PHARMACEUTICALS,INC./RIDGEFIELD-2011-BP-14282NB

PATIENT
  Sex: Female
  Weight: 48 kg

DRUGS (12)
  1. HANP [Concomitant]
     Indication: CARDIAC FAILURE
     Dosage: 3000 MCG
     Route: 042
     Dates: start: 20110509, end: 20110514
  2. LASIX [Concomitant]
     Dosage: 20 MG
     Route: 042
     Dates: start: 20110509, end: 20110517
  3. CANDESARTAN CILEXETIL [Suspect]
     Indication: BLOOD PRESSURE DECREASED
     Dosage: 8 MG
     Route: 048
     Dates: start: 20110509, end: 20110519
  4. LASIX [Concomitant]
     Dosage: 20 MG
     Route: 048
     Dates: start: 20110509
  5. ALDACTONE [Concomitant]
     Dosage: 25 MG
     Route: 048
     Dates: start: 20110509
  6. CARVEDILOL [Concomitant]
     Dosage: 2.5 MG
     Route: 048
     Dates: start: 20110509, end: 20110517
  7. PRADAXA [Suspect]
     Indication: ATRIAL FIBRILLATION
     Dosage: 220 MG
     Route: 048
     Dates: start: 20110514, end: 20110523
  8. LASIX [Concomitant]
     Dosage: 20 MG
     Route: 042
     Dates: start: 20110509, end: 20110517
  9. VERAPAMIL HCL [Suspect]
     Indication: DISCOMFORT
     Dosage: 80 MG
     Route: 048
     Dates: start: 20110511, end: 20110519
  10. DEPAS [Concomitant]
     Dosage: 0.5 MG
     Route: 048
     Dates: start: 20110513
  11. BISOPROLOL FUMARATE [Suspect]
     Indication: BLOOD PRESSURE DECREASED
     Dosage: 5 MG
     Route: 048
     Dates: start: 20110518, end: 20110519
  12. LASIX [Concomitant]
     Indication: CARDIAC FAILURE
     Dosage: 20 MG
     Route: 042
     Dates: start: 20110509, end: 20110517

REACTIONS (2)
  - SHOCK [None]
  - DRUG INTERACTION [None]
